FAERS Safety Report 6262095-2 (Version None)
Quarter: 2009Q3

REPORT INFORMATION
  Report Type: 
  Country: None (occurrence: None)
  Receive Date: 20090709
  Receipt Date: 20090702
  Transmission Date: 20100115
  Serious: Yes (Other)
  Sender: FDA-Public Use
  Company Number: US-WYE-H10012409

PATIENT
  Sex: Female
  Weight: 61.29 kg

DRUGS (2)
  1. PREMPRO [Suspect]
     Indication: HORMONE REPLACEMENT THERAPY
     Route: 048
     Dates: start: 20080101
  2. ATENOLOL [Concomitant]
     Dosage: UNKNOWN
     Route: 065

REACTIONS (1)
  - CONVULSION [None]
